FAERS Safety Report 6113986-4 (Version None)
Quarter: 2009Q1

REPORT INFORMATION
  Report Type: 
  Country: None (occurrence: None)
  Receive Date: 20090312
  Receipt Date: 20090302
  Transmission Date: 20090719
  Serious: No
  Sender: FDA-Public Use
  Company Number: US-ABBOTT-09P-163-0560424-00

PATIENT
  Sex: Female
  Weight: 56.75 kg

DRUGS (1)
  1. LUPRON DEPOT [Suspect]
     Indication: UTERINE LEIOMYOMA
     Route: 030
     Dates: start: 20080901, end: 20080901

REACTIONS (9)
  - ANOREXIA [None]
  - ASTHMA [None]
  - CHEST DISCOMFORT [None]
  - DYSPNOEA [None]
  - HEADACHE [None]
  - HYPOAESTHESIA [None]
  - NIGHT SWEATS [None]
  - THYROID NEOPLASM [None]
  - WEIGHT DECREASED [None]
